FAERS Safety Report 14914128 (Version 1)
Quarter: 2018Q2

REPORT INFORMATION
  Report Type: Spontaneous
  Country: US (occurrence: US)
  Receive Date: 20180518
  Receipt Date: 20180518
  Transmission Date: 20180711
  Serious: No
  Sender: FDA-Public Use
  Company Number: US-TEVA-2018-US-891971

PATIENT
  Sex: Female

DRUGS (1)
  1. ESZOPICLONE TEVA [Suspect]
     Active Substance: ESZOPICLONE
     Route: 065

REACTIONS (2)
  - Insomnia [Unknown]
  - Product quality issue [Unknown]
